FAERS Safety Report 18591078 (Version 1)
Quarter: 2020Q4

REPORT INFORMATION
  Report Type: Spontaneous
  Country: CA (occurrence: CA)
  Receive Date: 20201208
  Receipt Date: 20201208
  Transmission Date: 20210114
  Serious: Yes (Other)
  Sender: FDA-Public Use
  Company Number: CA-SA-2020SA345922

PATIENT

DRUGS (8)
  1. DEXAMETHASONE. [Concomitant]
     Active Substance: DEXAMETHASONE
  2. RAMIPRIL. [Concomitant]
     Active Substance: RAMIPRIL
  3. CYCLOPHOSPHAMIDE. [Concomitant]
     Active Substance: CYCLOPHOSPHAMIDE
  4. GABAPENTIN. [Concomitant]
     Active Substance: GABAPENTIN
  5. PEGFILGRASTIM [Concomitant]
     Active Substance: PEGFILGRASTIM
  6. DIPHENHYDRAMINE. [Concomitant]
     Active Substance: DIPHENHYDRAMINE
  7. CODEINE SULFATE. [Concomitant]
     Active Substance: CODEINE SULFATE
  8. DOCETAXEL. [Suspect]
     Active Substance: DOCETAXEL
     Indication: CHEMOTHERAPY
     Route: 042

REACTIONS (5)
  - Autoimmune disorder [Unknown]
  - Pyoderma gangrenosum [Unknown]
  - Pain [Unknown]
  - Bone pain [Unknown]
  - Stomatitis [Unknown]
